FAERS Safety Report 21823471 (Version 1)
Quarter: 2023Q1

REPORT INFORMATION
  Report Type: Spontaneous
  Country: JP (occurrence: JP)
  Receive Date: 20230105
  Receipt Date: 20230105
  Transmission Date: 20230417
  Serious: Yes (Hospitalization, Other)
  Sender: FDA-Public Use
  Company Number: JP-AMGEN-JPNSP2022225151

PATIENT

DRUGS (1)
  1. ADALIMUMAB [Suspect]
     Active Substance: ADALIMUMAB
     Indication: Crohn^s disease
     Dosage: UNK
     Route: 065

REACTIONS (9)
  - Intestinal obstruction [Unknown]
  - Crohn^s disease [Unknown]
  - Intestinal stenosis [Unknown]
  - Intestinal fistula [Unknown]
  - Gastrointestinal anastomotic stenosis [Unknown]
  - Abdominal abscess [Unknown]
  - Intestinal perforation [Unknown]
  - Gastrointestinal haemorrhage [Unknown]
  - Drug specific antibody present [Unknown]
